FAERS Safety Report 7977458-4 (Version None)
Quarter: 2011Q4

REPORT INFORMATION
  Report Type: 
  Country: None (occurrence: None)
  Receive Date: 20111214
  Receipt Date: 20111117
  Transmission Date: 20120403
  Serious: No
  Sender: FDA-Public Use
  Company Number: US-AMGEN-USASP2011054849

PATIENT
  Age: 62 Year
  Sex: Female
  Weight: 98.866 kg

DRUGS (7)
  1. ALLEGRA [Concomitant]
  2. GABAPENTIN [Concomitant]
  3. ENBREL [Suspect]
     Indication: RHEUMATOID ARTHRITIS
     Dosage: 50 MG, QWK
     Route: 058
     Dates: start: 20110930
  4. AXID                               /00867001/ [Concomitant]
  5. METHOTREXATE [Concomitant]
  6. NABUMETONE [Concomitant]
  7. AMITRIPTYLINE HCL [Concomitant]

REACTIONS (2)
  - INJECTION SITE PAIN [None]
  - FATIGUE [None]
